FAERS Safety Report 4996044-1 (Version None)
Quarter: 2006Q2

REPORT INFORMATION
  Report Type: 
  Country: None (occurrence: None)
  Receive Date: 20060508
  Receipt Date: 20060428
  Transmission Date: 20061013
  Serious: Yes (Hospitalization, Disabling)
  Sender: FDA-Public Use
  Company Number: US-MERCK-0605USA00514

PATIENT
  Age: 78 Year
  Sex: Female
  Weight: 55 kg

DRUGS (9)
  1. VIOXX [Suspect]
     Indication: ARTHRITIS
     Route: 048
     Dates: start: 19990601, end: 20021001
  2. FOSAMAX [Concomitant]
     Route: 065
  3. PRILOSEC [Concomitant]
     Route: 065
  4. FLEXERIL [Concomitant]
     Route: 065
  5. SYNTHROID [Concomitant]
     Route: 065
  6. DIAZIDE [Concomitant]
     Route: 065
  7. ULTRAM [Concomitant]
     Route: 065
  8. QUININE [Concomitant]
     Route: 065
  9. CALCIUM (UNSPECIFIED) [Concomitant]
     Route: 065

REACTIONS (1)
  - CEREBROVASCULAR ACCIDENT [None]
